FAERS Safety Report 12094494 (Version 4)
Quarter: 2016Q2

REPORT INFORMATION
  Report Type: Report from Study
  Country: PL (occurrence: PL)
  Receive Date: 20160219
  Receipt Date: 20160505
  Transmission Date: 20160815
  Serious: Yes (Hospitalization)
  Sender: FDA-Public Use
  Company Number: PL-AMGEN-POLCT2014099851

PATIENT
  Age: 73 Year
  Sex: Male
  Weight: 67.5 kg

DRUGS (25)
  1. FINASTERIDUM [Concomitant]
     Indication: BENIGN PROSTATIC HYPERPLASIA
     Dosage: 5 MG, QD
     Route: 048
     Dates: start: 2014
  2. RUSCUS ACULEATUS EXTRACT [Concomitant]
     Indication: DIABETIC FOOT
     Dosage: 150 MG, TID
     Route: 048
     Dates: start: 20141208
  3. ACICLOVIR [Concomitant]
     Active Substance: ACYCLOVIR
     Indication: ANTIVIRAL PROPHYLAXIS
     Dosage: 400 MG, BID
     Route: 048
     Dates: start: 20141006
  4. TRAMADOL. [Concomitant]
     Active Substance: TRAMADOL
     Indication: BONE PAIN
     Dosage: 50 MG, AS NECESSARY
     Route: 048
     Dates: start: 20141006
  5. FUROSEMIDE. [Concomitant]
     Active Substance: FUROSEMIDE
     Indication: HYPERTENSION
     Dosage: 40 MG, QD
     Route: 048
     Dates: start: 20141107
  6. SULODEXIDE [Concomitant]
     Active Substance: SULODEXIDE
     Indication: DIABETIC FOOT
     Dosage: 250 IU, BID
     Route: 048
     Dates: start: 20141209
  7. CARFILZOMIB [Suspect]
     Active Substance: CARFILZOMIB
     Indication: PLASMA CELL MYELOMA
     Dosage: 36 MG/M2, PER CHEMO REGIM
     Route: 042
     Dates: start: 20141006
  8. ONDANSETRON [Concomitant]
     Active Substance: ONDANSETRON
     Indication: ANTIEMETIC SUPPORTIVE CARE
     Dosage: 8 MG, AS NECESSARY
     Route: 048
     Dates: start: 20141006
  9. CLAVULANIC ACID [Concomitant]
     Active Substance: CLAVULANIC ACID
     Indication: DIABETIC FOOT
     Dosage: 125 MG, TID
     Route: 048
     Dates: start: 20141208
  10. CLOPIDOGRELUM [Concomitant]
     Indication: THROMBOSIS PROPHYLAXIS
     Dosage: 75 MG, QD
     Route: 048
     Dates: start: 20141114
  11. ATORVASTATIN [Concomitant]
     Active Substance: ATORVASTATIN
     Indication: PROPHYLAXIS
  12. PREDNISONE. [Suspect]
     Active Substance: PREDNISONE
     Indication: PLASMA CELL MYELOMA
     Dosage: 110 MG, PER CHEMO REGIM
     Route: 048
     Dates: start: 20141006
  13. NITRENDIPINE [Concomitant]
     Active Substance: NITRENDIPINE
     Indication: PROPHYLAXIS
     Dosage: 10 MG, UNK
     Route: 048
     Dates: start: 2012
  14. DOXYCYCLINE. [Concomitant]
     Active Substance: DOXYCYCLINE
     Indication: DIABETIC FOOT
     Dosage: 100 MG, QD
     Route: 048
     Dates: start: 20141205, end: 20141208
  15. MELPHALAN [Suspect]
     Active Substance: MELPHALAN
     Indication: PLASMA CELL MYELOMA
     Dosage: 8 MG, PER CHEMO REGIM
     Route: 048
     Dates: start: 20141006
  16. AMIODARONE [Concomitant]
     Active Substance: AMIODARONE
     Indication: PROPHYLAXIS
     Dosage: 200 MG, QD
     Route: 048
     Dates: start: 2012
  17. ACIDUM ASCORBICUM [Concomitant]
     Indication: DIABETIC FOOT
     Dosage: 100 MG, TID
     Route: 048
     Dates: start: 20141208
  18. OMEPRAZOLE. [Concomitant]
     Active Substance: OMEPRAZOLE
     Indication: GASTRITIS PROPHYLAXIS
     Dosage: 20 MG, QD
     Route: 048
     Dates: start: 20140826
  19. KALIUM CHLORATUM [Concomitant]
     Active Substance: POTASSIUM CHLORIDE
     Indication: PROPHYLAXIS
     Dosage: 391 MG, QD
     Route: 048
     Dates: start: 20140912
  20. ACETYLSALICYLIC ACID [Concomitant]
     Active Substance: ASPIRIN
     Indication: THROMBOSIS PROPHYLAXIS
     Dosage: 75 MG, QD
     Route: 048
     Dates: start: 20140922
  21. PENTOXIFYLLINE. [Concomitant]
     Active Substance: PENTOXIFYLLINE
     Indication: DIABETIC FOOT
     Dosage: 400 MG, BID
     Route: 048
     Dates: start: 20141209
  22. BUPRENORFINA                       /00444001/ [Concomitant]
     Indication: BONE PAIN
     Dosage: 0.025 MG, UNK
     Route: 062
     Dates: start: 20141001
  23. POLHUMIN R [Concomitant]
     Indication: DIABETES MELLITUS
     Dosage: 16 IU, UNK
     Route: 058
     Dates: start: 20141114
  24. AMOKSICILIN [Concomitant]
     Active Substance: AMOXICILLIN
     Indication: DIABETIC FOOT
     Dosage: 825 MG, TID
     Route: 048
     Dates: start: 20141208
  25. HESPERIDINUM [Concomitant]
     Indication: DIABETIC FOOT
     Dosage: 150 MG, TID
     Route: 048
     Dates: start: 20141208

REACTIONS (5)
  - Peripheral artery occlusion [Recovered/Resolved]
  - Peripheral ischaemia [Recovered/Resolved]
  - Diabetic foot [Recovered/Resolved]
  - Cellulitis [Recovering/Resolving]
  - Peripheral artery stenosis [Recovered/Resolved]

NARRATIVE: CASE EVENT DATE: 20141221
